FAERS Safety Report 5914001-5 (Version None)
Quarter: 2008Q4

REPORT INFORMATION
  Report Type: 
  Country: None (occurrence: None)
  Receive Date: 20081009
  Receipt Date: 20081007
  Transmission Date: 20090506
  Serious: Yes (Hospitalization, Other)
  Sender: FDA-Public Use
  Company Number: IT-BAYER-200822243GPV

PATIENT
  Age: 61 Year
  Sex: Male
  Weight: 68 kg

DRUGS (6)
  1. NEXAVAR [Suspect]
     Indication: HEPATIC NEOPLASM MALIGNANT
     Route: 048
     Dates: start: 20080417, end: 20080617
  2. KANRENOL [Concomitant]
     Indication: HEPATIC CIRRHOSIS
     Route: 048
     Dates: start: 20080617
  3. KANRENOL [Concomitant]
     Route: 048
     Dates: start: 20080702, end: 20080717
  4. DEURSIL [Concomitant]
     Indication: HEPATIC CIRRHOSIS
     Route: 048
     Dates: start: 20080702
  5. CONGESCOR [Concomitant]
     Indication: PORTAL HYPERTENSION
     Route: 048
     Dates: start: 20080702
  6. LANSOX [Concomitant]
     Indication: PROPHYLAXIS
     Route: 048
     Dates: start: 20080702

REACTIONS (2)
  - ASCITES [None]
  - HEPATIC FUNCTION ABNORMAL [None]
